FAERS Safety Report 17110860 (Version 1)
Quarter: 2019Q4

REPORT INFORMATION
  Report Type: Spontaneous
  Country: US (occurrence: US)
  Receive Date: 20191204
  Receipt Date: 20191204
  Transmission Date: 20200122
  Serious: Yes (Other)
  Sender: FDA-Public Use
  Company Number: US-ABBVIE-19K-163-2907035-00

PATIENT
  Sex: Female

DRUGS (2)
  1. LEVOTHYROXINE. [Suspect]
     Active Substance: LEVOTHYROXINE
     Indication: PRODUCT USED FOR UNKNOWN INDICATION
     Route: 048
  2. SYNTHROID [Suspect]
     Active Substance: LEVOTHYROXINE SODIUM
     Indication: PRODUCT USED FOR UNKNOWN INDICATION
     Route: 048
     Dates: start: 1969

REACTIONS (8)
  - Autoimmune thyroiditis [Not Recovered/Not Resolved]
  - Fatigue [Unknown]
  - Drug intolerance [Unknown]
  - Blood thyroid stimulating hormone abnormal [Unknown]
  - Rash [Unknown]
  - Thyroid mass [Not Recovered/Not Resolved]
  - Osteoporosis [Not Recovered/Not Resolved]
  - Feeling cold [Unknown]
